FAERS Safety Report 5787179-4 (Version None)
Quarter: 2008Q2

REPORT INFORMATION
  Report Type: 
  Country: None (occurrence: None)
  Receive Date: 20080625
  Receipt Date: 20080529
  Transmission Date: 20081010
  Serious: No
  Sender: FDA-Public Use
  Company Number: US-BAUSCH-2008BL002396

PATIENT
  Age: 66 Year
  Sex: Female

DRUGS (2)
  1. ALAWAY [Suspect]
     Indication: OFF LABEL USE
     Route: 047
     Dates: start: 20080501, end: 20080501
  2. ALAWAY [Suspect]
     Indication: KERATOCONJUNCTIVITIS SICCA
     Route: 047
     Dates: start: 20080501, end: 20080501

REACTIONS (2)
  - EYE IRRITATION [None]
  - KERATOCONJUNCTIVITIS SICCA [None]
